FAERS Safety Report 4755037-X (Version None)
Quarter: 2005Q3

REPORT INFORMATION
  Report Type: 
  Country: None (occurrence: None)
  Receive Date: 20050829
  Receipt Date: 20050816
  Transmission Date: 20060218
  Serious: Yes (Other)
  Sender: FDA-Public Use
  Company Number: IL-BRISTOL-MYERS SQUIBB COMPANY-13091806

PATIENT
  Age: 40 Year
  Sex: Female

DRUGS (4)
  1. CYCLOPHOSPHAMIDE [Suspect]
     Indication: NON-HODGKIN'S LYMPHOMA
  2. DOXORUBICIN [Suspect]
     Indication: NON-HODGKIN'S LYMPHOMA
  3. VINCRISTINE SULFATE [Suspect]
     Indication: NON-HODGKIN'S LYMPHOMA
  4. PREDNISONE TAB [Suspect]
     Indication: NON-HODGKIN'S LYMPHOMA

REACTIONS (1)
  - PREMATURE MENOPAUSE [None]
